FAERS Safety Report 16980879 (Version 1)
Quarter: 2019Q4

REPORT INFORMATION
  Report Type: Spontaneous
  Country: US (occurrence: US)
  Receive Date: 20191031
  Receipt Date: 20191031
  Transmission Date: 20200122
  Serious: No
  Sender: FDA-Public Use
  Company Number: US-FARMAPROD-201909-1399

PATIENT
  Sex: Male

DRUGS (8)
  1. COSOPT [Concomitant]
     Active Substance: DORZOLAMIDE HYDROCHLORIDE\TIMOLOL MALEATE
     Dosage: 22.3-6.8/1 DROPS
  2. DUREZOL [Concomitant]
     Active Substance: DIFLUPREDNATE
  3. ALREX [Concomitant]
     Active Substance: LOTEPREDNOL ETABONATE
  4. ZIOPTAN [Concomitant]
     Active Substance: TAFLUPROST
  5. RESTASIS [Concomitant]
     Active Substance: CYCLOSPORINE
  6. VALTREX [Concomitant]
     Active Substance: VALACYCLOVIR HYDROCHLORIDE
  7. OXERVATE [Suspect]
     Active Substance: CENEGERMIN-BKBJ
     Indication: NEUROTROPHIC KERATOPATHY
     Route: 047
  8. AZASITE [Concomitant]
     Active Substance: AZITHROMYCIN MONOHYDRATE

REACTIONS (3)
  - Weight increased [Unknown]
  - Intraocular pressure increased [Unknown]
  - Product administration error [Unknown]
